FAERS Safety Report 7266923-3 (Version None)
Quarter: 2011Q1

REPORT INFORMATION
  Report Type: 
  Country: None (occurrence: None)
  Receive Date: 20110201
  Receipt Date: 20110124
  Transmission Date: 20110831
  Serious: Yes (Other)
  Sender: FDA-Public Use
  Company Number: US-JNJFOC-20101001572

PATIENT
  Sex: Female

DRUGS (5)
  1. LEVAQUIN [Suspect]
     Route: 048
  2. LEVAQUIN [Suspect]
     Indication: LYMPHADENITIS
     Route: 048
  3. LEVAQUIN [Suspect]
     Indication: EAR INFECTION
     Route: 048
  4. PREDNISONE [Suspect]
     Indication: EAR INFECTION
     Route: 065
  5. LEVAQUIN [Suspect]
     Route: 048

REACTIONS (4)
  - ABDOMINAL PAIN UPPER [None]
  - ROTATOR CUFF SYNDROME [None]
  - SUNBURN [None]
  - BURSITIS [None]
